FAERS Safety Report 5530650-0 (Version None)
Quarter: 2007Q4

REPORT INFORMATION
  Report Type: 
  Country: None (occurrence: None)
  Receive Date: 20071130
  Receipt Date: 20071129
  Transmission Date: 20080405
  Serious: Yes (Life-Threatening, Other)
  Sender: FDA-Public Use
  Company Number: B0497589A

PATIENT
  Age: 57 Year
  Sex: Female
  Weight: 123 kg

DRUGS (13)
  1. ROSIGLITAZONE [Suspect]
     Route: 048
     Dates: start: 20060921, end: 20071008
  2. GLICLAZIDE [Concomitant]
     Route: 065
  3. METFORMIN HYDROCHLORIDE [Concomitant]
     Route: 065
  4. DICLOFENAC SODIUM [Concomitant]
     Route: 065
  5. FLUOXETINE [Concomitant]
     Route: 065
  6. DOXAZOSIN MESYLATE [Concomitant]
     Route: 065
  7. ATORVASTATIN CALCIUM [Concomitant]
     Route: 065
  8. ASPIRIN [Concomitant]
     Route: 065
  9. LOPERAMIDE HYDROCHLORIDE [Concomitant]
     Route: 065
  10. VERAPAMIL HYDROCHLORIDE [Concomitant]
     Route: 065
  11. CANDESARTAN CILEXETIL [Concomitant]
     Route: 065
  12. CO-CODAMOL [Concomitant]
     Route: 065
  13. BENDROFLUMETHIAZIDE [Concomitant]
     Route: 065

REACTIONS (2)
  - CARDIAC FAILURE CONGESTIVE [None]
  - PALPITATIONS [None]
